FAERS Safety Report 20531045 (Version 1)
Quarter: 2022Q1

REPORT INFORMATION
  Report Type: Spontaneous
  Country: AU (occurrence: AU)
  Receive Date: 20220301
  Receipt Date: 20220301
  Transmission Date: 20220424
  Serious: No
  Sender: FDA-Public Use
  Company Number: AU-LUPIN PHARMACEUTICALS INC.-2022-02295

PATIENT
  Age: 52 Year
  Sex: Male
  Weight: 120 kg

DRUGS (8)
  1. BETAMETHASONE DIPROPIONATE [Suspect]
     Active Substance: BETAMETHASONE DIPROPIONATE
     Indication: Pityriasis rubra pilaris
     Dosage: UNK
     Route: 061
  2. ACITRETIN [Suspect]
     Active Substance: ACITRETIN
     Indication: Pityriasis rubra pilaris
     Dosage: 25 MG, QD
     Route: 065
     Dates: start: 2016, end: 2016
  3. ACITRETIN [Suspect]
     Active Substance: ACITRETIN
     Dosage: 50 MG, QD
     Route: 065
     Dates: start: 2016, end: 2016
  4. ACITRETIN [Suspect]
     Active Substance: ACITRETIN
     Dosage: 50 MG, QD RESTARTED WITH METHOTREXATE
     Route: 065
     Dates: start: 2016, end: 2017
  5. METHOTREXATE [Suspect]
     Active Substance: METHOTREXATE
     Indication: Pityriasis rubra pilaris
     Dosage: 10 MG PER WEEK
     Route: 065
     Dates: start: 2016
  6. METHOTREXATE [Suspect]
     Active Substance: METHOTREXATE
     Dosage: INCREASED TO 25 MG/W, OVER 1 MONTH
     Route: 065
  7. METHOTREXATE [Suspect]
     Active Substance: METHOTREXATE
     Dosage: 10 MG PER WEEK (THEN REDUCING TO 10 MG/W WITH ACETRETIN)
     Route: 065
     Dates: end: 2017
  8. USTEKINUMAB [Suspect]
     Active Substance: USTEKINUMAB
     Indication: Pityriasis rubra pilaris
     Dosage: 90 MG PER 12 WEEKLY
     Route: 065
     Dates: start: 2017, end: 2018

REACTIONS (1)
  - Off label use [Unknown]
